FAERS Safety Report 25213900 (Version 1)
Quarter: 2025Q2

REPORT INFORMATION
  Report Type: Spontaneous
  Country: NO (occurrence: NO)
  Receive Date: 20250418
  Receipt Date: 20250418
  Transmission Date: 20250717
  Serious: Yes (Death, Other)
  Sender: BRACCO
  Company Number: NO-BRACCO-2025NO02327

PATIENT

DRUGS (1)
  1. IOMERON [Suspect]
     Active Substance: IOMEPROL

REACTIONS (4)
  - Death [Fatal]
  - Nausea [Unknown]
  - Vomiting [Unknown]
  - Urticaria [Unknown]
